FAERS Safety Report 5076618-2 (Version None)
Quarter: 2006Q3

REPORT INFORMATION
  Report Type: 
  Country: None (occurrence: None)
  Receive Date: 20060807
  Receipt Date: 20060720
  Transmission Date: 20061208
  Serious: Yes (Hospitalization)
  Sender: FDA-Public Use
  Company Number: 163-C5013-06020470

PATIENT
  Age: 73 Year
  Sex: Female
  Weight: 59.9 kg

DRUGS (7)
  1. CC-5013 (LENALIDOMIDE) (CAPSULES) [Suspect]
     Indication: MULTIPLE MYELOMA
     Dosage: 25 MG, QD FOR 21D, Q28D, ORAL
     Route: 048
     Dates: start: 20060117, end: 20060219
  2. CC-5013 (LENALIDOMIDE) (CAPSULES) [Suspect]
     Indication: MULTIPLE MYELOMA
     Dosage: 25 MG, QD FOR 21D, Q28D, ORAL
     Route: 048
     Dates: start: 20060227
  3. DEXAMETHASONE TAB [Suspect]
     Indication: MULTIPLE MYELOMA
     Dosage: ORAL
     Route: 048
     Dates: start: 20060117, end: 20060219
  4. DEXAMETHASONE TAB [Suspect]
     Indication: MULTIPLE MYELOMA
     Dosage: ORAL
     Route: 048
     Dates: start: 20060227
  5. ASPIRIN [Concomitant]
  6. PLAVIX [Concomitant]
  7. RED BLOOD CELLS [Concomitant]

REACTIONS (2)
  - HAEMOGLOBIN DECREASED [None]
  - MENTAL STATUS CHANGES [None]
